FAERS Safety Report 22308678 (Version 1)
Quarter: 2023Q2

REPORT INFORMATION
  Report Type: Spontaneous
  Country: US (occurrence: None)
  Receive Date: 20230511
  Receipt Date: 20230511
  Transmission Date: 20230722
  Serious: No
  Sender: FDA-Public Use
  Company Number: US-ROCHE-3273700

PATIENT
  Sex: Male

DRUGS (1)
  1. OCREVUS [Suspect]
     Active Substance: OCRELIZUMAB
     Indication: Multiple sclerosis
     Dosage: YES ?PATIENT AFTER HAVING 2 300MG OCREVUS INFUSIONS IN JAN, 2023. STARTING DOSES
     Route: 065
     Dates: start: 202301

REACTIONS (1)
  - Hypoaesthesia [Not Recovered/Not Resolved]
